FAERS Safety Report 5661187-6 (Version None)
Quarter: 2008Q1

REPORT INFORMATION
  Report Type: 
  Country: None (occurrence: None)
  Receive Date: 20080306
  Receipt Date: 20080219
  Transmission Date: 20080703
  Serious: Yes (Hospitalization)
  Sender: FDA-Public Use
  Company Number: 2008S1002652

PATIENT
  Age: 55 Year
  Sex: Female

DRUGS (2)
  1. AZATHIOPRINE [Suspect]
     Indication: CROHN'S DISEASE
  2. CORTICOSTEROIDS (CORTICOSTEROIDS) [Suspect]
     Indication: CROHN'S DISEASE

REACTIONS (6)
  - ACTINOMYCOSIS [None]
  - DEGENERATION OF UTERINE FIBROID [None]
  - IUCD COMPLICATION [None]
  - NECROSIS [None]
  - PELVIC ABSCESS [None]
  - UTERINE RUPTURE [None]
